FAERS Safety Report 7381331-2 (Version None)
Quarter: 2011Q1

REPORT INFORMATION
  Report Type: 
  Country: None (occurrence: None)
  Receive Date: 20110321
  Receipt Date: 20110310
  Transmission Date: 20110831
  Serious: Yes (Hospitalization)
  Sender: FDA-Public Use
  Company Number: WAES 0905FRA00027

PATIENT
  Age: 40 Year
  Sex: Male

DRUGS (7)
  1. EMTRICITABINE AND TENOFOVIR DISOPROXIL FUMARATE [Suspect]
     Indication: HIV INFECTION
     Dosage: 1 TAB DAILY, PO
     Route: 048
     Dates: start: 20051206
  2. FENOFIBRATE [Concomitant]
  3. DESLORATADINE [Concomitant]
  4. CAP RITONAVIR [Suspect]
     Indication: HIV INFECTION
     Dosage: 100 MG, BID, PO
     Route: 048
     Dates: start: 20041201
  5. ISENTRESS [Suspect]
     Indication: HIV INFECTION
     Dosage: 400 MG, BID, PO
     Route: 048
     Dates: start: 20070820
  6. TAB DARUNAVIR [Suspect]
     Indication: HIV INFECTION
     Dosage: 600 MG/ BID, PO
     Route: 048
     Dates: start: 20070820
  7. TAB ETRAVIRINE [Suspect]
     Indication: HIV INFECTION
     Dosage: 200 MG, BID, PO
     Route: 048
     Dates: start: 20070820

REACTIONS (1)
  - MYOCARDIAL ISCHAEMIA [None]
